FAERS Safety Report 10010510 (Version 2)
Quarter: 2014Q2

REPORT INFORMATION
  Report Type: Spontaneous
  Country: DE (occurrence: DE)
  Receive Date: 20140314
  Receipt Date: 20140421
  Transmission Date: 20141212
  Serious: Yes (Death, Other)
  Sender: FDA-Public Use
  Company Number: DE-AMGEN-DEUSP2014017096

PATIENT
  Sex: Male

DRUGS (3)
  1. XGEVA [Suspect]
     Indication: PRODUCT USED FOR UNKNOWN INDICATION
     Dosage: UNK
     Route: 065
     Dates: start: 20140109
  2. PROLIA [Suspect]
     Indication: PRODUCT USED FOR UNKNOWN INDICATION
     Route: 065
  3. XARELTO [Suspect]
     Indication: PRODUCT USED FOR UNKNOWN INDICATION
     Route: 065

REACTIONS (10)
  - Sepsis [Fatal]
  - Prostate cancer [Unknown]
  - Urinary bladder haemorrhage [Unknown]
  - Haemorrhage [Unknown]
  - Face oedema [Not Recovered/Not Resolved]
  - Mouth swelling [Unknown]
  - Dysphagia [Unknown]
  - Gingival pain [Unknown]
  - Peripheral swelling [Unknown]
  - Palatal oedema [Unknown]
